FAERS Safety Report 18404059 (Version 2)
Quarter: 2020Q4

REPORT INFORMATION
  Report Type: Other
  Country: US (occurrence: US)
  Receive Date: 20201020
  Receipt Date: 20201020
  Transmission Date: 20210114
  Serious: No
  Sender: FDA-Public Use
  Company Number: US-ROCHE-2696228

PATIENT
  Sex: Female
  Weight: 108.4 kg

DRUGS (6)
  1. METFORMIN [Concomitant]
     Active Substance: METFORMIN HYDROCHLORIDE
     Dosage: 1000 MG TABLET
     Route: 048
  2. ASPIRIN. [Concomitant]
     Active Substance: ASPIRIN
     Dosage: 81 MG TABLET
     Route: 048
  3. XELODA [Suspect]
     Active Substance: CAPECITABINE
     Indication: METASTASES TO CENTRAL NERVOUS SYSTEM
  4. XELODA [Suspect]
     Active Substance: CAPECITABINE
     Indication: BREAST CANCER FEMALE
     Dosage: TAKE 3 TABLET(S) BY MOUTH EVERY MORNING AND TAKE 3 TABLET(S) BY MOUTH EVERY EVENING 1 WEEK(S) ON, 1
     Route: 048
  5. XELODA [Suspect]
     Active Substance: CAPECITABINE
     Indication: ADVERSE DRUG REACTION
  6. GLYBURIDE. [Concomitant]
     Active Substance: GLYBURIDE
     Dosage: 1.25 MG TABLET
     Route: 048

REACTIONS (4)
  - Mood altered [Unknown]
  - Disturbance in attention [Unknown]
  - Fatigue [Unknown]
  - Malaise [Unknown]
